FAERS Safety Report 23728077 (Version 1)
Quarter: 2024Q2

REPORT INFORMATION
  Report Type: Spontaneous
  Country: CN (occurrence: CN)
  Receive Date: 20240410
  Receipt Date: 20240410
  Transmission Date: 20240716
  Serious: Yes (Other)
  Sender: FDA-Public Use
  Company Number: CN-009507513-2404CHN001295

PATIENT
  Age: 76 Year
  Sex: Female
  Weight: 46 kg

DRUGS (4)
  1. CILASTATIN SODIUM\IMIPENEM [Suspect]
     Active Substance: CILASTATIN SODIUM\IMIPENEM
     Indication: Ureterolithiasis
     Dosage: 1G, BID
     Route: 041
     Dates: start: 20240311, end: 20240314
  2. CILASTATIN SODIUM\IMIPENEM [Suspect]
     Active Substance: CILASTATIN SODIUM\IMIPENEM
     Indication: Pyonephrosis
  3. SODIUM CHLORIDE [Concomitant]
     Active Substance: SODIUM CHLORIDE
     Indication: Medication dilution
     Dosage: 100ML, BID
     Route: 041
     Dates: start: 20240311, end: 20240314
  4. TRAMADOL HYDROCHLORIDE [Concomitant]
     Active Substance: TRAMADOL HYDROCHLORIDE
     Indication: Analgesic therapy
     Dosage: 0.1G, Q12H
     Route: 048
     Dates: start: 20240308, end: 20240311

REACTIONS (6)
  - Type 2 diabetes mellitus [Unknown]
  - Femoral neck fracture [Unknown]
  - Delirium [Recovering/Resolving]
  - Seizure [Recovered/Resolved]
  - Product prescribing issue [Unknown]
  - Product use in unapproved indication [Unknown]

NARRATIVE: CASE EVENT DATE: 20240101
